FAERS Safety Report 7363923-X (Version None)
Quarter: 2011Q1

REPORT INFORMATION
  Report Type: 
  Country: None (occurrence: None)
  Receive Date: 20110321
  Receipt Date: 20110316
  Transmission Date: 20110831
  Serious: Yes (Death)
  Sender: FDA-Public Use
  Company Number: VN-ROCHE-765866

PATIENT
  Age: 52 Year
  Sex: Male

DRUGS (1)
  1. TAMIFLU [Suspect]
     Indication: H1N1 INFLUENZA
     Dosage: INDICATION REPORTES: A/H1N1 INFLUENZA
     Route: 065

REACTIONS (1)
  - DEATH [None]
